FAERS Safety Report 4454918-4 (Version None)
Quarter: 2004Q3

REPORT INFORMATION
  Report Type: 
  Country: None (occurrence: None)
  Receive Date: 20040921
  Receipt Date: 20040909
  Transmission Date: 20050211
  Serious: Yes (Hospitalization)
  Sender: FDA-Public Use
  Company Number: PT-GLAXOSMITHKLINE-B0345425A

PATIENT
  Age: 68 Year
  Sex: Female
  Weight: 62 kg

DRUGS (1)
  1. AUGMENTIN [Suspect]
     Route: 048
     Dates: start: 20020101

REACTIONS (2)
  - CHEST DISCOMFORT [None]
  - RASH MACULAR [None]
